FAERS Safety Report 11067829 (Version 1)
Quarter: 2015Q2

REPORT INFORMATION
  Report Type: Spontaneous
  Country: US (occurrence: None)
  Receive Date: 20150424
  Receipt Date: 20150424
  Transmission Date: 20150821
  Serious: Yes (Other)
  Sender: FDA-Public Use
  Company Number: None

PATIENT
  Age: 41 Year
  Sex: Male
  Weight: 121.8 kg

DRUGS (6)
  1. REVLIMID [Suspect]
     Active Substance: LENALIDOMIDE
     Indication: HODGKIN^S DISEASE
     Dosage: DAILY X 21 DAYS OF 28
     Route: 048
     Dates: start: 20150313, end: 20150403
  2. IBUPROFEN 600 MG [Concomitant]
  3. ASPIRIN 81 MG [Concomitant]
     Active Substance: ASPIRIN
  4. NYSTATIN SUSPENSION 10 ML [Concomitant]
  5. METFORMIN 1,000 MG [Concomitant]
  6. HYDROCODONE 1-2 TABS (5-325 MG) [Concomitant]

REACTIONS (8)
  - Tongue discolouration [None]
  - Tongue disorder [None]
  - Speech disorder [None]
  - Transaminases increased [None]
  - Liver function test abnormal [None]
  - Pyrexia [None]
  - Pain in extremity [None]
  - Fatigue [None]

NARRATIVE: CASE EVENT DATE: 20150313
